FAERS Safety Report 6030792-X (Version None)
Quarter: 2009Q1

REPORT INFORMATION
  Report Type: 
  Country: None (occurrence: None)
  Receive Date: 20090107
  Receipt Date: 20090105
  Transmission Date: 20090719
  Serious: No
  Sender: FDA-Public Use
  Company Number: PHEH2008US10896

PATIENT
  Sex: Female

DRUGS (2)
  1. GENTEAL GEL (NVO) [Suspect]
  2. GENTEAL DROPS (NVO) [Suspect]

REACTIONS (6)
  - DRUG INEFFECTIVE [None]
  - EYE BURNS [None]
  - EYE IRRITATION [None]
  - EYE SWELLING [None]
  - HYPERSENSITIVITY [None]
  - OCULAR HYPERAEMIA [None]
